FAERS Safety Report 19970406 (Version 2)
Quarter: 2021Q4

REPORT INFORMATION
  Report Type: Spontaneous
  Country: JP (occurrence: JP)
  Receive Date: 20211019
  Receipt Date: 20211029
  Transmission Date: 20220304
  Serious: Yes (Death, Other)
  Sender: FDA-Public Use
  Company Number: JP-BAYER-2021A231801

PATIENT
  Age: 76 Year
  Sex: Male

DRUGS (3)
  1. STIVARGA [Suspect]
     Active Substance: REGORAFENIB
     Indication: Colorectal cancer
     Dosage: 160MG
     Dates: start: 20200930
  2. STIVARGA [Suspect]
     Active Substance: REGORAFENIB
     Indication: Colorectal cancer
     Dosage: 160MG
     Dates: start: 20201028
  3. STIVARGA [Suspect]
     Active Substance: REGORAFENIB
     Indication: Colorectal cancer
     Dosage: 160MG
     Dates: start: 20201125

REACTIONS (3)
  - Death [Fatal]
  - Cardiac failure [None]
  - Oedema peripheral [None]

NARRATIVE: CASE EVENT DATE: 20201125
